FAERS Safety Report 12423173 (Version 2)
Quarter: 2016Q3

REPORT INFORMATION
  Report Type: Report from Study
  Country: GB (occurrence: GB)
  Receive Date: 20160601
  Receipt Date: 20160712
  Transmission Date: 20161109
  Serious: Yes (Hospitalization)
  Sender: FDA-Public Use
  Company Number: PHFR2016GB004495

PATIENT
  Age: 52 Year
  Sex: Female
  Weight: 72.8 kg

DRUGS (6)
  1. AMITRIPTYLINE [Concomitant]
     Active Substance: AMITRIPTYLINE
     Indication: SLEEP DISORDER
     Dosage: 20 MG, UNK
     Route: 065
     Dates: start: 20090402
  2. DESOGESTREL [Concomitant]
     Active Substance: DESOGESTREL
     Indication: CONTRACEPTION
     Dosage: 0.75 MG, UNK
     Route: 065
     Dates: start: 20120910
  3. GILENYA [Suspect]
     Active Substance: FINGOLIMOD HYDROCHLORIDE
     Indication: MULTIPLE SCLEROSIS
     Dosage: 0.5 MG, QD
     Route: 048
     Dates: start: 20141223
  4. PREGABALIN. [Concomitant]
     Active Substance: PREGABALIN
     Indication: PAIN
     Dosage: 300 MG, UNK
     Route: 065
     Dates: start: 20120910
  5. BACLOFEN. [Concomitant]
     Active Substance: BACLOFEN
     Indication: PAIN
     Dosage: 40 MG, UNK
     Route: 065
     Dates: start: 20091106
  6. CODEINE [Concomitant]
     Active Substance: CODEINE
     Indication: PAIN
     Dosage: 240 MG, UNK
     Route: 065
     Dates: start: 20160522, end: 20160527

REACTIONS (2)
  - Scarlet fever [Recovered/Resolved]
  - Streptococcal sepsis [Unknown]

NARRATIVE: CASE EVENT DATE: 20160518
